FAERS Safety Report 6240100-7 (Version None)
Quarter: 2009Q2

REPORT INFORMATION
  Report Type: 
  Country: None (occurrence: None)
  Receive Date: 20090623
  Receipt Date: 20090615
  Transmission Date: 20091009
  Serious: Yes (Other)
  Sender: FDA-Public Use
  Company Number: US-JNJFOC-20090605485

PATIENT
  Sex: Female
  Weight: 89.36 kg

DRUGS (3)
  1. DURAGESIC-100 [Suspect]
     Indication: SCOLIOSIS
     Route: 062
  2. DIOVAN [Concomitant]
     Indication: HYPERTENSION
     Route: 048
  3. SYNTHROID [Concomitant]
     Indication: THYROID DISORDER
     Route: 048

REACTIONS (8)
  - DIARRHOEA [None]
  - DIZZINESS [None]
  - DRY MOUTH [None]
  - EATING DISORDER [None]
  - HYPERSOMNIA [None]
  - HYPERTENSION [None]
  - NAUSEA [None]
  - VOMITING [None]
